FAERS Safety Report 4681199-9 (Version None)
Quarter: 2005Q2

REPORT INFORMATION
  Report Type: 
  Country: None (occurrence: None)
  Receive Date: 20050602
  Receipt Date: 20050602
  Transmission Date: 20051028
  Serious: No
  Sender: FDA-Public Use
  Company Number: None

PATIENT
  Sex: Male
  Weight: 80 kg

DRUGS (2)
  1. CYTARABINE [Suspect]
     Indication: ACUTE MYELOID LEUKAEMIA
     Dosage: 3040 MG IV OVER ONE HOUR DAILY OR DAYS 1-6
     Route: 042
     Dates: start: 20050401
  2. ANTIHYPERTENSIVE [Concomitant]

REACTIONS (6)
  - ANAEMIA [None]
  - FEBRILE NEUTROPENIA [None]
  - INFECTION [None]
  - LOSS OF CONSCIOUSNESS [None]
  - ORTHOSTATIC HYPOTENSION [None]
  - TREATMENT NONCOMPLIANCE [None]
